FAERS Safety Report 15638889 (Version 2)
Quarter: 2018Q4

REPORT INFORMATION
  Report Type: Spontaneous
  Country: US (occurrence: US)
  Receive Date: 20181120
  Receipt Date: 20181126
  Transmission Date: 20190205
  Serious: Yes (Hospitalization, Other)
  Sender: FDA-Public Use
  Company Number: US-PFIZER INC-2018470015

PATIENT
  Age: 27 Year
  Sex: Female

DRUGS (22)
  1. METHYLPREDNISOLONE. [Suspect]
     Active Substance: METHYLPREDNISOLONE
     Indication: LYMPHADENOPATHY
     Dosage: 30 MG, 1X/DAY
     Route: 048
  2. FAMOTIDINE. [Concomitant]
     Active Substance: FAMOTIDINE
     Dosage: 20 MG, 2X/DAY
  3. METHYLPREDNISOLONE SODIUM SUCCINATE. [Suspect]
     Active Substance: METHYLPREDNISOLONE SODIUM SUCCINATE
     Indication: MASTOCYTIC LEUKAEMIA
  4. FLUOXETINE [Concomitant]
     Active Substance: FLUOXETINE HYDROCHLORIDE
     Indication: ANXIETY
     Dosage: 40 MG, DAILY (INCREASING)
  5. PROMETHAZINE [Concomitant]
     Active Substance: PROMETHAZINE\PROMETHAZINE HYDROCHLORIDE
     Indication: NAUSEA
     Dosage: 20 MG, 3X/DAY
  6. ONDANSETRON [Concomitant]
     Active Substance: ONDANSETRON
     Indication: NAUSEA
     Dosage: 8 MG, 3X/DAY
  7. MORPHINE [Concomitant]
     Active Substance: MORPHINE
     Indication: BREAKTHROUGH PAIN
     Dosage: 30 MG, AS NEEDED (IMMEDIATE RELEASE, EVERY 3 HOURS)
  8. METHYLPREDNISOLONE SODIUM SUCCINATE. [Suspect]
     Active Substance: METHYLPREDNISOLONE SODIUM SUCCINATE
     Indication: LYMPHADENOPATHY
     Dosage: 20 MG, 3X/DAY (EVERY 8 HOURS)
     Route: 042
  9. LORAZEPAM. [Concomitant]
     Active Substance: LORAZEPAM
     Indication: DEPRESSION
     Dosage: 1 MG, 2X/DAY (12 HOURS)
  10. HYDROXYZINE [Concomitant]
     Active Substance: HYDROXYZINE HYDROCHLORIDE
     Dosage: 100 MG, 2X/DAY
  11. LORATADINE. [Concomitant]
     Active Substance: LORATADINE
     Dosage: 10 MG, DAILY
  12. MORPHINE [Concomitant]
     Active Substance: MORPHINE
     Indication: PAIN
     Dosage: 100 MG, 1X/DAY (EXTENDED RELEASE, EVERY EVENING)
  13. LORAZEPAM. [Concomitant]
     Active Substance: LORAZEPAM
     Indication: ANXIETY
  14. METHYLPREDNISOLONE. [Suspect]
     Active Substance: METHYLPREDNISOLONE
     Indication: MASTOCYTIC LEUKAEMIA
     Dosage: 4 MG, 1X/DAY (DECREASING STEROID DOSE)
     Route: 048
  15. MORPHINE [Concomitant]
     Active Substance: MORPHINE
     Dosage: 60 MG, 1X/DAY (EXTENDED RELEASE, AT MIDDAY)
  16. FLUOXETINE [Concomitant]
     Active Substance: FLUOXETINE HYDROCHLORIDE
     Indication: DEPRESSION
     Dosage: 20 MG, 1X/DAY
  17. LORAZEPAM. [Concomitant]
     Active Substance: LORAZEPAM
     Indication: ACUTE STRESS DISORDER
     Dosage: 0.5 MG, 2X/DAY (AS NEEDED)
  18. DEXAMETHASONE. [Suspect]
     Active Substance: DEXAMETHASONE
     Indication: LEUKAEMIA
     Dosage: 4 MG, 2X/DAY (ON HOSPITAL DAY 10)
     Route: 042
  19. OXYCODONE [Concomitant]
     Active Substance: OXYCODONE
     Indication: PAIN
     Dosage: UNK (INCREASING DOSES)
  20. TRAZODONE [Concomitant]
     Active Substance: TRAZODONE HYDROCHLORIDE
     Indication: INSOMNIA
     Dosage: 50 MG, 1X/DAY (AT NIGHT)
  21. MIDOSTAURIN [Concomitant]
     Active Substance: MIDOSTAURIN
     Indication: LEUKAEMIA
     Dosage: 100 MG, DAILY
  22. MORPHINE [Concomitant]
     Active Substance: MORPHINE
     Dosage: 60 MG, 1X/DAY (EXTENDED RELEASE, IN THE MORNING)

REACTIONS (2)
  - Insomnia [Not Recovered/Not Resolved]
  - Anxiety [Not Recovered/Not Resolved]
